FAERS Safety Report 4992275-5 (Version None)
Quarter: 2006Q2

REPORT INFORMATION
  Report Type: 
  Country: None (occurrence: None)
  Receive Date: 20060502
  Receipt Date: 20060419
  Transmission Date: 20061013
  Serious: Yes (Hospitalization)
  Sender: FDA-Public Use
  Company Number: 224245

PATIENT
  Age: 51 Year
  Sex: Male

DRUGS (3)
  1. AVASTIN [Suspect]
     Indication: SQUAMOUS CELL CARCINOMA
     Dosage: 5 MG/KG
     Dates: start: 20051212
  2. DOCETAXEL (DOCETAXEL) [Suspect]
     Indication: SQUAMOUS CELL CARCINOMA
  3. RADIATION (RADIATION THERAPY) [Suspect]
     Indication: SQUAMOUS CELL CARCINOMA

REACTIONS (6)
  - BLOOD CULTURE POSITIVE [None]
  - CHILLS [None]
  - JUGULAR VEIN THROMBOSIS [None]
  - PYREXIA [None]
  - STAPHYLOCOCCAL INFECTION [None]
  - TENDERNESS [None]
